FAERS Safety Report 15397668 (Version 1)
Quarter: 2018Q3

REPORT INFORMATION
  Report Type: Report from Study
  Country: BR (occurrence: BR)
  Receive Date: 20180918
  Receipt Date: 20180918
  Transmission Date: 20181010
  Serious: Yes (Hospitalization, Other)
  Sender: FDA-Public Use
  Company Number: PHHY2017BR116013

PATIENT
  Sex: Female
  Weight: 90 kg

DRUGS (9)
  1. XOLAIR [Suspect]
     Active Substance: OMALIZUMAB
     Dosage: 300 MG, QMO (TWO AMPOULES PER MONTH)
     Route: 058
     Dates: start: 201209
  2. VANNAIR [Concomitant]
     Active Substance: BUDESONIDE\FORMOTEROL FUMARATE DIHYDRATE
     Indication: PRODUCT USED FOR UNKNOWN INDICATION
     Dosage: 400 UNK, UNK FOR 3 YEARS
     Route: 065
  3. XOLAIR [Suspect]
     Active Substance: OMALIZUMAB
     Indication: ASTHMA
     Dosage: 2 DF, QMO
     Route: 058
     Dates: start: 2011
  4. PARACETAMOL [Concomitant]
     Active Substance: ACETAMINOPHEN
     Indication: PAIN
     Route: 065
  5. SPIRIVA [Concomitant]
     Active Substance: TIOTROPIUM BROMIDE MONOHYDRATE
     Indication: PRODUCT USED FOR UNKNOWN INDICATION
     Dosage: FOR 3 YEARS
     Route: 065
  6. ALENIA [Concomitant]
     Active Substance: BUDESONIDE\FORMOTEROL FUMARATE
     Indication: PRODUCT USED FOR UNKNOWN INDICATION
     Dosage: 400 UNK, UNK FOR 3 YEARS
     Route: 065
  7. SALBUTAMOL [Concomitant]
     Active Substance: ALBUTEROL
     Indication: PRODUCT USED FOR UNKNOWN INDICATION
     Dosage: FOR 7 YEARS
     Route: 065
  8. FORASEQ [Suspect]
     Active Substance: BUDESONIDE\FORMOTEROL FUMARATE
     Indication: ASTHMA
     Dosage: 400 UNK, BID FOR 4 YEARS
     Route: 065
  9. LOSARTAN. [Concomitant]
     Active Substance: LOSARTAN
     Indication: HYPERTENSION
     Dosage: 2 DF, QD
     Route: 065
     Dates: start: 2012

REACTIONS (20)
  - Malaise [Unknown]
  - Quality of life decreased [Unknown]
  - Wheezing [Not Recovered/Not Resolved]
  - Bone disorder [Not Recovered/Not Resolved]
  - Pulmonary oedema [Recovering/Resolving]
  - Dyspnoea [Not Recovered/Not Resolved]
  - Sensitivity to weather change [Unknown]
  - Pneumonia [Recovering/Resolving]
  - Nasopharyngitis [Not Recovered/Not Resolved]
  - Chest discomfort [Recovering/Resolving]
  - Anxiety [Unknown]
  - Varicose vein [Unknown]
  - Asthma [Recovered/Resolved]
  - Nervousness [Unknown]
  - Asthmatic crisis [Not Recovered/Not Resolved]
  - Wheezing [Recovered/Resolved]
  - Breath sounds abnormal [Recovered/Resolved]
  - Hypersensitivity [Recovering/Resolving]
  - Fatigue [Unknown]
  - Bone pain [Not Recovered/Not Resolved]
